FAERS Safety Report 4747649-4 (Version None)
Quarter: 2005Q3

REPORT INFORMATION
  Report Type: 
  Country: None (occurrence: None)
  Receive Date: 20050818
  Receipt Date: 20050418
  Transmission Date: 20060218
  Serious: No
  Sender: FDA-Public Use
  Company Number: US-BRISTOL-MYERS SQUIBB COMPANY-12936738

PATIENT
  Sex: Female

DRUGS (3)
  1. TEQUIN [Suspect]
     Indication: PNEUMONIA
     Route: 048
  2. TEQUIN [Suspect]
     Indication: PNEUMONIA
     Route: 042
  3. LEXAPRO [Concomitant]

REACTIONS (1)
  - DIARRHOEA [None]
